FAERS Safety Report 9551740 (Version 1)
Quarter: 2013Q3

REPORT INFORMATION
  Report Type: Spontaneous
  Country: US (occurrence: US)
  Receive Date: 20130925
  Receipt Date: 20130925
  Transmission Date: 20140515
  Serious: No
  Sender: FDA-Public Use
  Company Number: US-BAYER-2013-115778

PATIENT
  Age: 15 Year
  Sex: Male
  Weight: 81.63 kg

DRUGS (1)
  1. ALEVE CAPLET [Suspect]
     Indication: ANALGESIC THERAPY
     Dosage: 3 DF, ONCE
     Route: 048
     Dates: start: 20130924, end: 20130924

REACTIONS (1)
  - Inappropriate schedule of drug administration [None]
